FAERS Safety Report 5937643-X (Version None)
Quarter: 2008Q4

REPORT INFORMATION
  Report Type: 
  Country: None (occurrence: None)
  Receive Date: 20081031
  Receipt Date: 20081021
  Transmission Date: 20090506
  Serious: Yes (Life-Threatening, Hospitalization)
  Sender: FDA-Public Use
  Company Number: FR-JNJFOC-20081005886

PATIENT
  Age: 84 Year
  Sex: Female

DRUGS (6)
  1. PEVARYL LOTION [Suspect]
     Indication: DERMATITIS
     Dosage: THERAPY DURATION 17 DAYS
     Route: 061
  2. ACENOCOUMAROL [Interacting]
     Indication: DEEP VEIN THROMBOSIS
     Route: 065
  3. ACENOCOUMAROL [Interacting]
     Indication: ATRIAL FIBRILLATION
     Route: 065
  4. IRBESARTAN [Concomitant]
     Indication: HYPERTENSION
     Route: 065
  5. URAPIDIL [Concomitant]
     Indication: HYPERTENSION
     Route: 065
  6. FUROSEMIDE [Concomitant]
     Indication: HYPERTENSION
     Route: 065

REACTIONS (4)
  - CERVIX HAEMATOMA UTERINE [None]
  - DRUG INTERACTION [None]
  - HAEMATOMA [None]
  - MOUTH HAEMORRHAGE [None]
